FAERS Safety Report 7395238-8 (Version None)
Quarter: 2011Q2

REPORT INFORMATION
  Report Type: 
  Country: None (occurrence: None)
  Receive Date: 20110405
  Receipt Date: 20110322
  Transmission Date: 20111010
  Serious: Yes (Hospitalization)
  Sender: FDA-Public Use
  Company Number: NL-MYLANLABS-2011S1006075

PATIENT
  Age: 63 Year
  Sex: Male

DRUGS (6)
  1. SUNITINIB [Interacting]
     Indication: METASTATIC RENAL CELL CARCINOMA
     Route: 048
  2. TOLBUTAMIDE [Concomitant]
     Route: 065
  3. AMLODIPINE [Suspect]
     Indication: HYPERTENSION
     Route: 065
  4. SUNITINIB [Interacting]
     Route: 048
  5. ATENOLOL [Concomitant]
     Route: 065
  6. HALOPERIDOL [Concomitant]
     Route: 065

REACTIONS (2)
  - DRUG INTERACTION [None]
  - PSYCHOTIC DISORDER [None]
